FAERS Safety Report 12980638 (Version 5)
Quarter: 2018Q1

REPORT INFORMATION
  Report Type: Report from Study
  Country: US (occurrence: US)
  Receive Date: 20161128
  Receipt Date: 20180306
  Transmission Date: 20180508
  Serious: Yes (Hospitalization)
  Sender: FDA-Public Use
  Company Number: US-ACTELION-A-NJ2016-146058

PATIENT
  Age: 33 Year
  Sex: Female
  Weight: 78.5 kg

DRUGS (6)
  1. UPTRAVI [Suspect]
     Active Substance: SELEXIPAG
     Dosage: 400 MCG AM, 600 MCG PM
     Route: 048
  2. ADCIRCA [Concomitant]
     Active Substance: TADALAFIL
  3. UPTRAVI [Suspect]
     Active Substance: SELEXIPAG
     Dosage: UNK
     Route: 048
     Dates: start: 20161024
  4. UPTRAVI [Suspect]
     Active Substance: SELEXIPAG
     Dosage: 1000 MCG, BID
     Route: 048
  5. UPTRAVI [Suspect]
     Active Substance: SELEXIPAG
     Indication: PULMONARY ARTERIAL HYPERTENSION
     Dosage: 600 MCG, BID
     Route: 048
  6. WARFARIN [Concomitant]
     Active Substance: WARFARIN

REACTIONS (7)
  - Headache [Unknown]
  - Flushing [Unknown]
  - Pain [Unknown]
  - Pain in jaw [Unknown]
  - Ligament sprain [Unknown]
  - Hypertension [Unknown]
  - Diarrhoea [Unknown]
